FAERS Safety Report 7987972-3 (Version None)
Quarter: 2011Q4

REPORT INFORMATION
  Report Type: 
  Country: None (occurrence: None)
  Receive Date: 20111216
  Receipt Date: 20110518
  Transmission Date: 20120403
  Serious: No
  Sender: FDA-Public Use
  Company Number: US-BRISTOL-MYERS SQUIBB COMPANY-15754773

PATIENT
  Age: 60 Year
  Sex: Male
  Weight: 97 kg

DRUGS (1)
  1. ABILIFY [Suspect]
     Dates: start: 20110501

REACTIONS (2)
  - TACHYCARDIA [None]
  - BLOOD PRESSURE INCREASED [None]
